FAERS Safety Report 4907347-0 (Version None)
Quarter: 2006Q1

REPORT INFORMATION
  Report Type: 
  Country: None (occurrence: None)
  Receive Date: 20060208
  Receipt Date: 20060208
  Transmission Date: 20060701
  Serious: Yes (Hospitalization)
  Sender: FDA-Public Use
  Company Number: None

PATIENT
  Age: 46 Year
  Sex: Male

DRUGS (8)
  1. FENTANYL [Suspect]
     Indication: PAIN
     Dosage: 25 MCG/HR Q72H
     Dates: start: 20051222
  2. OXYCODONE [Suspect]
     Indication: PAIN
     Dosage: 5 ML Q4H PRN
     Dates: start: 20051222
  3. GABAPENTIN [Concomitant]
  4. MECLIZINE [Concomitant]
  5. PHENYTOIN [Concomitant]
  6. SENOKOT [Concomitant]
  7. TEMAZEPAM [Concomitant]
  8. VITAMIN P [Concomitant]

REACTIONS (1)
  - ILEUS [None]
